FAERS Safety Report 8675900 (Version 2)
Quarter: 2013Q4

REPORT INFORMATION
  Report Type: Report from Study
  Country: MX (occurrence: MX)
  Receive Date: 20120720
  Receipt Date: 20131118
  Transmission Date: 20140711
  Serious: No
  Sender: FDA-Public Use
  Company Number: PHHY2011MX102472

PATIENT
  Age: 64 Year
  Sex: Female

DRUGS (4)
  1. ACLASTA [Suspect]
     Indication: OSTEOPOROSIS
     Dosage: 5MG/100 ML PER YEAR
     Route: 042
     Dates: start: 201111
  2. ACLASTA [Suspect]
     Indication: BONE DISORDER
     Dosage: 5MG/100 ML PER YEAR
     Route: 042
  3. CALCIUM [Concomitant]
     Dosage: UNK UKN, QW4
  4. VITAMIN D [Concomitant]
     Dosage: 500 UKN, QW2

REACTIONS (15)
  - Apathy [Unknown]
  - Peripheral coldness [Unknown]
  - Dysstasia [Unknown]
  - Colitis [Not Recovered/Not Resolved]
  - Pain in extremity [Unknown]
  - Arthralgia [Unknown]
  - Headache [Unknown]
  - Malaise [Unknown]
  - Gastritis [Not Recovered/Not Resolved]
  - Local swelling [Recovered/Resolved]
  - Pain [Unknown]
  - Somnolence [Recovered/Resolved]
  - Bone pain [Recovered/Resolved]
  - Influenza [Recovered/Resolved]
  - Incorrect drug administration rate [Unknown]
